FAERS Safety Report 8953355 (Version 1)
Quarter: 2012Q4

REPORT INFORMATION
  Report Type: Report from Study
  Country: GB (occurrence: GB)
  Receive Date: 20121206
  Receipt Date: 20121206
  Transmission Date: 20130627
  Serious: Yes (Death, Hospitalization)
  Sender: FDA-Public Use
  Company Number: GB-BRISTOL-MYERS SQUIBB COMPANY-17160102

PATIENT
  Age: 77 Year
  Sex: Male
  Weight: 94.9 kg

DRUGS (12)
  1. TAXOL [Suspect]
     Indication: NON-SMALL CELL LUNG CANCER
     Dosage: Last dose was on 19Oct12
     Route: 042
     Dates: start: 20121019
  2. PEMETREXED DISODIUM [Suspect]
     Indication: NON-SMALL CELL LUNG CANCER
     Dosage: Last dose was on 19Oct12
     Route: 042
     Dates: start: 20121019
  3. ASPIRIN [Concomitant]
  4. CLOPIDOGREL BISULFATE [Concomitant]
  5. NICORANDIL [Concomitant]
  6. BISOPROLOL [Concomitant]
  7. TILDIEM [Concomitant]
  8. METFORMIN [Concomitant]
  9. SIMVASTATIN [Concomitant]
  10. TAMSULOSIN [Concomitant]
  11. HUMULIN M3 [Concomitant]
     Dosage: Injection
  12. HYDROCHLOROTHIAZIDE [Concomitant]

REACTIONS (4)
  - Cardiac arrest [Fatal]
  - Malaise [Fatal]
  - Dehydration [Fatal]
  - Pyrexia [Fatal]
